FAERS Safety Report 4585070-2 (Version None)
Quarter: 2005Q1

REPORT INFORMATION
  Report Type: 
  Country: None (occurrence: None)
  Receive Date: 20050217
  Receipt Date: 20041220
  Transmission Date: 20050727
  Serious: No
  Sender: FDA-Public Use
  Company Number: US-GLAXOSMITHKLINE-A0538014A

PATIENT
  Age: 52 Year
  Sex: Female

DRUGS (8)
  1. WELLBUTRIN XL [Suspect]
     Indication: DEPRESSION
     Dosage: 300MG PER DAY
     Route: 048
     Dates: start: 20041001, end: 20041001
  2. PAXIL [Suspect]
     Indication: ILL-DEFINED DISORDER
     Route: 048
  3. ZETIA [Concomitant]
  4. VENTOLIN HFA [Concomitant]
  5. PREVACID [Concomitant]
  6. CELEBREX [Concomitant]
  7. AVANDIA [Concomitant]
  8. PREMARIN [Concomitant]

REACTIONS (1)
  - ABDOMINAL PAIN UPPER [None]
